FAERS Safety Report 15363744 (Version 1)
Quarter: 2018Q3

REPORT INFORMATION
  Report Type: Spontaneous
  Country: US (occurrence: US)
  Receive Date: 20180908
  Receipt Date: 20180908
  Transmission Date: 20181010
  Serious: Yes (Hospitalization, Other)
  Sender: FDA-Public Use
  Company Number: US-ABBVIE-18K-163-2474347-00

PATIENT

DRUGS (4)
  1. REMICADE [Suspect]
     Active Substance: INFLIXIMAB
     Indication: PRODUCT USED FOR UNKNOWN INDICATION
     Route: 065
  2. CIMZIA [Suspect]
     Active Substance: CERTOLIZUMAB PEGOL
     Indication: PRODUCT USED FOR UNKNOWN INDICATION
     Route: 065
  3. SIMPONI [Suspect]
     Active Substance: GOLIMUMAB
     Indication: PRODUCT USED FOR UNKNOWN INDICATION
     Route: 065
  4. HUMIRA [Suspect]
     Active Substance: ADALIMUMAB
     Indication: PRODUCT USED FOR UNKNOWN INDICATION
     Route: 058

REACTIONS (13)
  - Sinus pain [Unknown]
  - Feeling hot [Unknown]
  - Drug ineffective [Unknown]
  - Sinus disorder [Unknown]
  - Crohn^s disease [Recovered/Resolved]
  - Nasal septum perforation [Unknown]
  - Swelling face [Unknown]
  - Nasal septum ulceration [Unknown]
  - Nasal crusting [Unknown]
  - Epistaxis [Unknown]
  - Drug hypersensitivity [Unknown]
  - Crohn^s disease [Unknown]
  - Nasal oedema [Unknown]

NARRATIVE: CASE EVENT DATE: 2002
